FAERS Safety Report 6036063-X (Version None)
Quarter: 2009Q1

REPORT INFORMATION
  Report Type: 
  Country: None (occurrence: None)
  Receive Date: 20090113
  Receipt Date: 20090106
  Transmission Date: 20090719
  Serious: Yes (Hospitalization)
  Sender: FDA-Public Use
  Company Number: HU-PFIZER INC-2009153027

PATIENT

DRUGS (2)
  1. CORTEF [Suspect]
     Indication: ADRENOGENITAL SYNDROME
     Dosage: 1 MG, 3X/DAY
     Route: 048
     Dates: start: 20060101
  2. ASTONIN-H [Concomitant]
     Dosage: UNK
     Route: 048

REACTIONS (2)
  - HYPOGLYCAEMIC SEIZURE [None]
  - HYPOGLYCAEMIC UNCONSCIOUSNESS [None]
